FAERS Safety Report 5403011-2 (Version None)
Quarter: 2007Q3

REPORT INFORMATION
  Report Type: 
  Country: None (occurrence: None)
  Receive Date: 20070801
  Receipt Date: 20070730
  Transmission Date: 20080115
  Serious: Yes (Other)
  Sender: FDA-Public Use
  Company Number: US-ASTRAZENECA-2007UW18259

PATIENT
  Age: 11 Year
  Sex: Female

DRUGS (5)
  1. SEROQUEL [Suspect]
     Indication: AGITATION
     Route: 048
     Dates: start: 20061101
  2. SEROQUEL [Suspect]
     Indication: AGGRESSION
     Route: 048
     Dates: start: 20061101
  3. SEROQUEL [Suspect]
     Indication: HALLUCINATION
     Route: 048
     Dates: start: 20061101
  4. LYRICA [Concomitant]
  5. DEPAKOTE [Concomitant]

REACTIONS (3)
  - ABNORMAL BEHAVIOUR [None]
  - BLOOD GLUCOSE INCREASED [None]
  - TYPE 1 DIABETES MELLITUS [None]
